FAERS Safety Report 6463915-9 (Version None)
Quarter: 2009Q4

REPORT INFORMATION
  Report Type: 
  Country: None (occurrence: None)
  Receive Date: 20091201
  Receipt Date: 20091120
  Transmission Date: 20100525
  Serious: Yes (Other)
  Sender: FDA-Public Use
  Company Number: FI-JNJFOC-20091101567

PATIENT
  Age: 53 Year
  Sex: Female
  Weight: 60 kg

DRUGS (3)
  1. CAELYX [Suspect]
     Dosage: 2 CYCLES
     Route: 042
  2. CAELYX [Suspect]
     Indication: OVARIAN CANCER
     Dosage: 2 CYCLES
     Route: 042
  3. FENTANYL-100 [Suspect]
     Indication: PAIN
     Route: 062

REACTIONS (2)
  - ASCITES [None]
  - ILEUS PARALYTIC [None]
